FAERS Safety Report 12588028 (Version 2)
Quarter: 2016Q3

REPORT INFORMATION
  Report Type: Spontaneous
  Country: JP (occurrence: JP)
  Receive Date: 20160725
  Receipt Date: 20160818
  Transmission Date: 20161109
  Serious: Yes (Death, Other)
  Sender: FDA-Public Use
  Company Number: JP-PFIZER INC-2016354953

PATIENT
  Age: 80 Year
  Sex: Female

DRUGS (1)
  1. AMIODARONE HCL [Suspect]
     Active Substance: AMIODARONE HYDROCHLORIDE
     Indication: VENTRICULAR ARRHYTHMIA
     Dosage: 2 MG, DAILY
     Route: 048

REACTIONS (3)
  - Drug level increased [Unknown]
  - Hepatic failure [Fatal]
  - Hepatic cirrhosis [Fatal]
